FAERS Safety Report 14003736 (Version 1)
Quarter: 2017Q3

REPORT INFORMATION
  Report Type: Spontaneous
  Country: US (occurrence: US)
  Receive Date: 20170922
  Receipt Date: 20170922
  Transmission Date: 20171128
  Serious: No
  Sender: FDA-Public Use
  Company Number: US-JNJFOC-20170707521

PATIENT
  Sex: Male
  Weight: 120.2 kg

DRUGS (17)
  1. DURAGESIC [Suspect]
     Active Substance: FENTANYL
     Indication: POST-TRAUMATIC PAIN
     Route: 062
  2. CYCLOBENZAPRINE. [Concomitant]
     Active Substance: CYCLOBENZAPRINE
     Indication: MUSCLE RELAXANT THERAPY
     Dosage: UP TO 3 A DAY
     Route: 048
  3. CLONAZEPAM. [Concomitant]
     Active Substance: CLONAZEPAM
     Route: 048
  4. ATORVASTATIN [Concomitant]
     Active Substance: ATORVASTATIN
     Route: 048
  5. LISINOPRIL. [Concomitant]
     Active Substance: LISINOPRIL
     Route: 048
  6. DURAGESIC [Suspect]
     Active Substance: FENTANYL
     Indication: POST-TRAUMATIC PAIN
     Route: 062
     Dates: end: 2017
  7. GLIPIZIDE. [Concomitant]
     Active Substance: GLIPIZIDE
     Indication: DIABETES MELLITUS
     Route: 048
  8. FOLIC ACID. [Concomitant]
     Active Substance: FOLIC ACID
     Route: 048
  9. DURAGESIC [Suspect]
     Active Substance: FENTANYL
     Indication: POST-TRAUMATIC PAIN
     Dosage: 100MCG PLUS 75MCG
     Route: 062
     Dates: start: 2016
  10. DURAGESIC [Suspect]
     Active Substance: FENTANYL
     Indication: POST-TRAUMATIC PAIN
     Route: 062
     Dates: end: 2016
  11. DURAGESIC [Suspect]
     Active Substance: FENTANYL
     Indication: POST-TRAUMATIC PAIN
     Route: 062
     Dates: start: 2017
  12. PREVACID [Concomitant]
     Active Substance: LANSOPRAZOLE
     Route: 048
  13. MORPHINE [Concomitant]
     Active Substance: MORPHINE
     Dosage: UP TO 4 A DAY
     Route: 048
  14. METFORMIN [Concomitant]
     Active Substance: METFORMIN HYDROCHLORIDE
     Indication: DIABETES MELLITUS
     Route: 048
  15. TESTOSTERONE. [Concomitant]
     Active Substance: TESTOSTERONE
     Route: 058
  16. DURAGESIC [Suspect]
     Active Substance: FENTANYL
     Indication: POST-TRAUMATIC PAIN
     Route: 062
     Dates: end: 2017
  17. ACTIQ [Concomitant]
     Active Substance: FENTANYL CITRATE
     Indication: BREAKTHROUGH PAIN
     Dosage: UP TO 6 A MONTH
     Route: 048

REACTIONS (6)
  - Glycosylated haemoglobin increased [Unknown]
  - Wrong technique in product usage process [Unknown]
  - Drug ineffective [Unknown]
  - Product adhesion issue [Unknown]
  - Withdrawal syndrome [Unknown]
  - Tremor [Unknown]

NARRATIVE: CASE EVENT DATE: 2017
